FAERS Safety Report 19593252 (Version 3)
Quarter: 2021Q3

REPORT INFORMATION
  Report Type: Report from Study
  Country: MX (occurrence: MX)
  Receive Date: 20210722
  Receipt Date: 20210814
  Transmission Date: 20211014
  Serious: Yes (Death, Other)
  Sender: FDA-Public Use
  Company Number: NVSC2021MX165487

PATIENT
  Age: 75 Year
  Sex: Male
  Weight: 50 kg

DRUGS (2)
  1. EXFORGE HCT [Suspect]
     Active Substance: AMLODIPINE BESYLATE\HYDROCHLOROTHIAZIDE\VALSARTAN
     Indication: HYPERTENSION
     Dosage: 1 DF, Q12H
     Route: 048
     Dates: start: 202101
  2. EXFORGE HCT [Suspect]
     Active Substance: AMLODIPINE BESYLATE\HYDROCHLOROTHIAZIDE\VALSARTAN
     Dosage: 1 DF, Q12H
     Route: 048
     Dates: start: 202104

REACTIONS (4)
  - Malnutrition [Fatal]
  - Inappropriate schedule of product administration [Unknown]
  - Renal failure [Fatal]
  - Multi-organ disorder [Unknown]

NARRATIVE: CASE EVENT DATE: 202104
